FAERS Safety Report 5803709-8 (Version None)
Quarter: 2008Q3

REPORT INFORMATION
  Report Type: 
  Country: None (occurrence: None)
  Receive Date: 20080708
  Receipt Date: 20071016
  Transmission Date: 20090109
  Serious: No
  Sender: FDA-Public Use
  Company Number: US-AMGEN-KDL248208

PATIENT
  Sex: Male

DRUGS (4)
  1. KINERET [Suspect]
     Indication: RHEUMATOID ARTHRITIS
     Route: 058
     Dates: start: 20051101
  2. ANTIBIOTICS [Suspect]
  3. PLAQUENIL [Concomitant]
     Dates: start: 20010101
  4. ARAVA [Concomitant]
     Route: 048
     Dates: start: 20020101

REACTIONS (1)
  - LOCALISED INFECTION [None]
